FAERS Safety Report 8982033 (Version 1)
Quarter: 2012Q4

REPORT INFORMATION
  Report Type: 
  Country: US (occurrence: US)
  Receive Date: 20121212
  Receipt Date: 20121212
  Transmission Date: 20130627
  Serious: Yes (Death, Hospitalization, Other)
  Sender: FDA-Public Use
  Company Number: US-ASTELLAS-CID000000002112963

PATIENT
  Sex: Female

DRUGS (2)
  1. TARCEVA [Suspect]
     Indication: MALIGNANT RESPIRATORY TRACT NEOPLASM
     Route: 048
     Dates: end: 20050713
  2. TARCEVA [Suspect]
     Indication: LUNG ADENOCARCINOMA

REACTIONS (6)
  - Non-small cell lung cancer metastatic [Fatal]
  - Cerebrovascular accident [Unknown]
  - VIIth nerve paralysis [Unknown]
  - Dysphagia [Unknown]
  - Rash [Recovered/Resolved]
  - Dermatitis exfoliative [Recovered/Resolved]
